FAERS Safety Report 18683267 (Version 1)
Quarter: 2020Q4

REPORT INFORMATION
  Report Type: Spontaneous
  Country: NL (occurrence: FR)
  Receive Date: 20201230
  Receipt Date: 20201230
  Transmission Date: 20210114
  Serious: Yes (Other)
  Sender: FDA-Public Use
  Company Number: FR-FRESENIUS KABI-FK202013863

PATIENT
  Age: 78 Year
  Sex: Female
  Weight: 50 kg

DRUGS (2)
  1. GEMCITABINE. [Suspect]
     Active Substance: GEMCITABINE
     Indication: LEIOMYOSARCOMA METASTATIC
     Dosage: CF DESCRIPTION?GEMCITABINE KABI (GEMCITABINE HYDROCHLORIDE)
     Route: 042
     Dates: start: 20140124, end: 20140307
  2. METHYLPREDNISOLONE HEMISUCCINATE [Concomitant]
     Active Substance: METHYLPREDNISOLONE HEMISUCCINATE
     Indication: LEIOMYOSARCOMA METASTATIC
     Dosage: CF DESCRIPTION
     Route: 042
     Dates: start: 20140124, end: 20140307

REACTIONS (1)
  - Pulmonary arterial hypertension [Not Recovered/Not Resolved]

NARRATIVE: CASE EVENT DATE: 20140321
